FAERS Safety Report 9420751 (Version 6)
Quarter: 2014Q2

REPORT INFORMATION
  Report Type: Spontaneous
  Country: JP (occurrence: None)
  Receive Date: 20130723
  Receipt Date: 20140407
  Transmission Date: 20141212
  Serious: Yes (Hospitalization, Disabling)
  Sender: FDA-Public Use
  Company Number: JP-012352

PATIENT
  Age: 69 Year
  Sex: Male
  Weight: 59.2 kg

DRUGS (3)
  1. DEGARELIX [Suspect]
     Indication: PROSTATE CANCER
     Dosage: 80 MG 1X/MONTH SUBCUTANEOUS
     Route: 058
     Dates: start: 20130205, end: 20130608
  2. SHAKUYAKUKANZOTO [Suspect]
     Indication: MUSCLE SPASMS
     Dosage: 3 G, 3 G, PRN ORAL
     Route: 048
     Dates: start: 20130527, end: 20130608
  3. BISCALUTAMIDE [Suspect]
     Indication: PROSTATE CANCER
     Route: 048
     Dates: start: 20130108, end: 20130608

REACTIONS (5)
  - Drug-induced liver injury [None]
  - Interstitial lung disease [None]
  - Rhabdomyolysis [None]
  - Hepatic function abnormal [None]
  - Liver disorder [None]
